FAERS Safety Report 18025066 (Version 7)
Quarter: 2021Q1

REPORT INFORMATION
  Report Type: Spontaneous
  Country: US (occurrence: US)
  Receive Date: 20200715
  Receipt Date: 20210317
  Transmission Date: 20210419
  Serious: Yes (Other)
  Sender: FDA-Public Use
  Company Number: US-PFIZER INC-2020268789

PATIENT
  Age: 80 Year
  Sex: Female
  Weight: 53.52 kg

DRUGS (5)
  1. MEKTOVI [Suspect]
     Active Substance: BINIMETINIB
     Indication: BREAST CANCER
     Dosage: 30 MG, 2X/DAY
     Route: 048
  2. MEKTOVI [Suspect]
     Active Substance: BINIMETINIB
     Dosage: 45 MG
  3. AFINITOR [Concomitant]
     Active Substance: EVEROLIMUS
     Dosage: UNK
  4. BRAFTOVI [Suspect]
     Active Substance: ENCORAFENIB
     Indication: BREAST CANCER
     Dosage: 300 MG, DAILY
     Route: 048
  5. EXEMESTANE. [Concomitant]
     Active Substance: EXEMESTANE
     Dosage: UNK  (1 TABLET DAILY AFTER MEALS)

REACTIONS (15)
  - Gastrointestinal disorder [Unknown]
  - Blood cholesterol increased [Unknown]
  - Fatigue [Unknown]
  - Irritable bowel syndrome [Unknown]
  - Blood glucose increased [Unknown]
  - Red blood cell count decreased [Recovered/Resolved]
  - Diverticulitis [Unknown]
  - Abdominal pain [Unknown]
  - Fibromyalgia [Unknown]
  - Hot flush [Unknown]
  - Weight decreased [Unknown]
  - Glycosylated haemoglobin decreased [Unknown]
  - White blood cell count decreased [Recovered/Resolved]
  - Nipple disorder [Unknown]
  - Depressed mood [Unknown]
